FAERS Safety Report 7238289-6 (Version None)
Quarter: 2011Q1

REPORT INFORMATION
  Report Type: 
  Country: None (occurrence: None)
  Receive Date: 20110119
  Receipt Date: 20110119
  Transmission Date: 20110831
  Serious: Yes (Hospitalization)
  Sender: FDA-Public Use
  Company Number: None

PATIENT
  Age: 49 Year
  Sex: Male

DRUGS (2)
  1. BACTROBAN OINT [Concomitant]
  2. BACTRIM DS [Suspect]
     Indication: WOUND INFECTION STAPHYLOCOCCAL
     Dosage: BACTRIM DS 160/800 BID PO
     Route: 048

REACTIONS (5)
  - PYREXIA [None]
  - DIARRHOEA [None]
  - RASH [None]
  - THROMBOCYTOPENIA [None]
  - RENAL FAILURE ACUTE [None]
